FAERS Safety Report 4811290-5 (Version None)
Quarter: 2005Q4

REPORT INFORMATION
  Report Type: 
  Country: None (occurrence: None)
  Receive Date: 20051026
  Receipt Date: 20051026
  Transmission Date: 20060501
  Serious: Yes (Hospitalization)
  Sender: FDA-Public Use
  Company Number: None

PATIENT
  Age: 68 Year
  Sex: Male

DRUGS (2)
  1. METOCLOPRAMIDE [Suspect]
     Indication: GASTRIC DISORDER
     Dosage: 5MG PO TID
     Route: 048
  2. CITALOPRAM 20MG [Suspect]
     Indication: DEPRESSION
     Dosage: 20 MG PO QD
     Route: 048

REACTIONS (2)
  - COGNITIVE DISORDER [None]
  - TREMOR [None]
